FAERS Safety Report 5114637-8 (Version None)
Quarter: 2006Q3

REPORT INFORMATION
  Report Type: 
  Country: None (occurrence: None)
  Receive Date: 20060922
  Receipt Date: 20060912
  Transmission Date: 20061208
  Serious: Yes (Other)
  Sender: FDA-Public Use
  Company Number: 2006112688

PATIENT
  Sex: Female

DRUGS (1)
  1. CYTOTEC [Suspect]
     Indication: INDUCED LABOUR
     Dates: start: 20030701

REACTIONS (3)
  - CAESAREAN SECTION [None]
  - DRUG EXPOSURE DURING PREGNANCY [None]
  - UTERINE DISORDER [None]
